FAERS Safety Report 16101148 (Version 4)
Quarter: 2021Q2

REPORT INFORMATION
  Report Type: Report from Study
  Country: JP (occurrence: JP)
  Receive Date: 20190321
  Receipt Date: 20210428
  Transmission Date: 20210716
  Serious: Yes (Hospitalization, Other)
  Sender: FDA-Public Use
  Company Number: JP-INCYTE CORPORATION-2019IN002622

PATIENT

DRUGS (7)
  1. RED CELLS CONCENTRATES?LEUKOCYTES REDUCED [Concomitant]
     Active Substance: HUMAN RED BLOOD CELL
     Indication: PRIMARY MYELOFIBROSIS
     Dosage: 2 IU, UNK
     Route: 065
  2. JAKAVI [Suspect]
     Active Substance: RUXOLITINIB
     Dosage: 15 MG, BID
     Route: 048
     Dates: start: 20170508, end: 20170704
  3. JAKAVI [Suspect]
     Active Substance: RUXOLITINIB
     Dosage: 30 MG AND 25 MG ON ALTERNATE DAYS
     Route: 048
     Dates: start: 20170705, end: 20181015
  4. JAKAVI [Suspect]
     Active Substance: RUXOLITINIB
     Dosage: 25 MG, IN TWO DIVIDED DOSES
     Route: 048
     Dates: start: 20170315, end: 20170507
  5. JAKAVI [Suspect]
     Active Substance: RUXOLITINIB
     Dosage: 30 MG AND 25 MG ON ALTERNATE DAYS
     Route: 048
     Dates: start: 20181205
  6. RED CELLS CONCENTRATES?LEUKOCYTES REDUCED [Concomitant]
     Active Substance: HUMAN RED BLOOD CELL
     Dosage: 4 IU, UNK
     Route: 065
     Dates: start: 20170214
  7. JAKAVI [Suspect]
     Active Substance: RUXOLITINIB
     Indication: PRIMARY MYELOFIBROSIS
     Dosage: 15 MG, BID
     Route: 048
     Dates: start: 20170214, end: 20170314

REACTIONS (2)
  - Diabetes mellitus [Not Recovered/Not Resolved]
  - Sepsis [Recovered/Resolved]

NARRATIVE: CASE EVENT DATE: 20181010
